FAERS Safety Report 17718112 (Version 1)
Quarter: 2020Q2

REPORT INFORMATION
  Report Type: Spontaneous
  Country: PL (occurrence: PL)
  Receive Date: 20200428
  Receipt Date: 20200428
  Transmission Date: 20200714
  Serious: Yes (Hospitalization)
  Sender: FDA-Public Use
  Company Number: PL-AVION PHARMACEUTICALS, LLC-2083269

PATIENT
  Age: 34 Year
  Sex: Female

DRUGS (2)
  1. BALCOLTRA [Suspect]
     Active Substance: ETHINYL ESTRADIOL\LEVONORGESTREL
     Indication: ENDOMETRIOSIS
     Route: 048
  2. DIENOGESTENE [DIENOGEST] [Suspect]
     Active Substance: DIENOGEST
     Route: 048

REACTIONS (2)
  - Porphyria non-acute [Recovered/Resolved]
  - Blister [Recovered/Resolved]
